FAERS Safety Report 20805764 (Version 2)
Quarter: 2022Q4

REPORT INFORMATION
  Report Type: Report from Study
  Country: US (occurrence: None)
  Receive Date: 20220510
  Receipt Date: 20221027
  Transmission Date: 20230113
  Serious: Yes (Other)
  Sender: FDA-Public Use
  Company Number: US-Hikma Pharmaceuticals-US-H14001-22-00543

PATIENT
  Sex: Male

DRUGS (1)
  1. KLOXXADO [Suspect]
     Active Substance: NALOXONE HYDROCHLORIDE
     Indication: Overdose
     Dosage: UNKNOWN
     Route: 045

REACTIONS (3)
  - Somnolence [Unknown]
  - Depressed level of consciousness [Unknown]
  - Feeling abnormal [Unknown]
